FAERS Safety Report 8629289 (Version 3)
Quarter: 2013Q4

REPORT INFORMATION
  Report Type: Spontaneous
  Country: FR (occurrence: FR)
  Receive Date: 20120621
  Receipt Date: 20131105
  Transmission Date: 20140711
  Serious: Yes (Hospitalization)
  Sender: FDA-Public Use
  Company Number: FR-009507513-1206USA02952

PATIENT
  Age: 91 Year
  Sex: Female

DRUGS (12)
  1. TIENAM IV [Suspect]
     Dosage: 500  MG, QID
     Route: 042
     Dates: start: 20120507, end: 20120521
  2. MINISINTROM [Interacting]
     Route: 048
     Dates: start: 20120425
  3. PIPERACILINA TAZOBACTAM RICHET [Interacting]
     Dosage: UNK MG, UNK
     Route: 042
     Dates: start: 20120506, end: 20120509
  4. TEMERIT [Concomitant]
     Dosage: 2.5 MG, QD
  5. LOXEN [Concomitant]
     Dosage: 50 MG, BID
  6. HEMIGOXINE NATIVELLE [Concomitant]
     Dosage: 0.125 MG, QD
  7. GENTAMICINE [Interacting]
     Dosage: 5 MG/KG, QD
     Route: 042
     Dates: start: 20120506, end: 20120509
  8. VANCOMYCINE SANDOZ [Interacting]
     Route: 042
     Dates: start: 20120506, end: 20120508
  9. ACETAMINOPHEN [Concomitant]
     Dosage: UNK UNK, PRN
  10. PREVISCAN [Concomitant]
     Dates: end: 20120418
  11. AMIKACIN [Interacting]
     Dosage: 1617 MG, QD
     Dates: start: 20120507, end: 20120510
  12. STILNOX [Concomitant]
     Dosage: 10 MG, QD

REACTIONS (3)
  - International normalised ratio increased [Recovered/Resolved]
  - Overdose [Recovered/Resolved]
  - Drug interaction [Recovered/Resolved]
